FAERS Safety Report 11424521 (Version 1)
Quarter: 2015Q3

REPORT INFORMATION
  Report Type: Spontaneous
  Country: US (occurrence: US)
  Receive Date: 20150827
  Receipt Date: 20150827
  Transmission Date: 20151125
  Serious: No
  Sender: FDA-Public Use
  Company Number: US-TEVA-589267USA

PATIENT
  Sex: Female

DRUGS (3)
  1. LIPO-FLAVONOID [Concomitant]
  2. QNASL [Suspect]
     Active Substance: BECLOMETHASONE DIPROPIONATE
     Route: 045
  3. EYE DROPS [Concomitant]
     Active Substance: TETRAHYDROZOLINE HYDROCHLORIDE

REACTIONS (3)
  - Cough [Unknown]
  - Rhinorrhoea [Unknown]
  - Tinnitus [Not Recovered/Not Resolved]
